FAERS Safety Report 6543377-3 (Version None)
Quarter: 2010Q1

REPORT INFORMATION
  Report Type: 
  Country: None (occurrence: None)
  Receive Date: 20100120
  Receipt Date: 20100112
  Transmission Date: 20100710
  Serious: Yes (Life-Threatening, Hospitalization)
  Sender: FDA-Public Use
  Company Number: CH-ROCHE-679213

PATIENT
  Age: 78 Year
  Sex: Male

DRUGS (13)
  1. AVASTIN [Suspect]
     Indication: DRUG USE FOR UNKNOWN INDICATION
     Route: 041
     Dates: start: 20090101, end: 20090401
  2. AVASTIN [Interacting]
     Route: 041
     Dates: start: 20090923, end: 20091007
  3. AVASTIN [Interacting]
     Route: 041
     Dates: start: 20091023, end: 20091023
  4. 5-FU [Interacting]
     Indication: DRUG USE FOR UNKNOWN INDICATION
     Route: 041
     Dates: start: 20090101, end: 20090401
  5. 5-FU [Interacting]
     Route: 041
     Dates: start: 20090923, end: 20091021
  6. CAMPTOSAR [Interacting]
     Indication: DRUG USE FOR UNKNOWN INDICATION
     Route: 041
     Dates: start: 20091021, end: 20091021
  7. FOLINIC ACID [Concomitant]
     Route: 041
     Dates: start: 20090101, end: 20090401
  8. FOLINIC ACID [Concomitant]
     Route: 041
     Dates: start: 20090923, end: 20091007
  9. FOLINIC ACID [Concomitant]
     Route: 041
     Dates: start: 20091021, end: 20091021
  10. METFIN [Concomitant]
     Route: 048
  11. DIAMICRON [Concomitant]
     Route: 048
  12. ELOXATIN [Concomitant]
     Dates: start: 20090101, end: 20090401
  13. ELOXATIN [Concomitant]
     Dates: start: 20090923, end: 20091007

REACTIONS (3)
  - AGRANULOCYTOSIS [None]
  - DRUG INTERACTION [None]
  - MUCOSAL INFLAMMATION [None]
